FAERS Safety Report 20146498 (Version 5)
Quarter: 2021Q4

REPORT INFORMATION
  Report Type: Report from Study
  Country: TR (occurrence: None)
  Receive Date: 20211203
  Receipt Date: 20211228
  Transmission Date: 20220303
  Serious: Yes (Hospitalization)
  Sender: FDA-Public Use
  Company Number: TR-ROCHE-2965688

PATIENT
  Age: 51 Year
  Sex: Female
  Weight: 77.3 kg

DRUGS (6)
  1. COBIMETINIB [Suspect]
     Active Substance: COBIMETINIB
     Indication: Ovarian neoplasm
     Dosage: ON 22/NOV/2021, SHE RECEIVED MOST RECENT DOSE OF COBIMETINIB (60 MG) PRIOR TO ONSET OF SERIOUS ADVER
     Route: 048
     Dates: start: 20211109
  2. PERGE [Concomitant]
     Indication: Neuropathy peripheral
     Route: 048
  3. DOLADAMON P [Concomitant]
     Indication: Neuropathy peripheral
     Route: 048
     Dates: start: 2018
  4. OKSAPAR [Concomitant]
     Indication: Peripheral swelling
     Route: 058
     Dates: start: 20211109, end: 20211117
  5. SUCRALFATE [Concomitant]
     Active Substance: SUCRALFATE
     Indication: Dyspepsia
     Route: 048
     Dates: start: 20211117, end: 20211123
  6. HUMAN RED BLOOD CELL [Concomitant]
     Active Substance: HUMAN RED BLOOD CELL
     Indication: Anaemia
     Route: 050
     Dates: start: 20211126, end: 20211126

REACTIONS (1)
  - Urinary tract infection [Recovered/Resolved]

NARRATIVE: CASE EVENT DATE: 20211123
